FAERS Safety Report 21393008 (Version 1)
Quarter: 2022Q3

REPORT INFORMATION
  Report Type: Report from Study
  Country: US (occurrence: US)
  Receive Date: 20220929
  Receipt Date: 20220929
  Transmission Date: 20221027
  Serious: Yes (Death)
  Sender: FDA-Public Use
  Company Number: US-ABBVIE-4132904

PATIENT
  Age: 78 Year
  Sex: Female

DRUGS (1)
  1. VENCLEXTA [Suspect]
     Active Substance: VENETOCLAX
     Indication: Plasma cell myeloma
     Dosage: TAKE 1 TABLET BY MOUTH ONCE FOOD DAILY WITH D AND A FULL GLASS OF WATER FOR 14D ON THEN 14D OFF
     Route: 048
     Dates: start: 20211215

REACTIONS (1)
  - Death [Fatal]

NARRATIVE: CASE EVENT DATE: 20220923
